FAERS Safety Report 10674614 (Version 1)
Quarter: 2014Q4

REPORT INFORMATION
  Report Type: Spontaneous
  Country: US (occurrence: None)
  Receive Date: 20141209
  Receipt Date: 20141209
  Transmission Date: 20150529
  Serious: Yes (Life-Threatening)
  Sender: FDA-Public Use
  Company Number: 404898

PATIENT
  Age: 69 Year
  Sex: Male
  Weight: 101.4 kg

DRUGS (3)
  1. NOVOLOG [Suspect]
     Active Substance: INSULIN ASPART
     Indication: TYPE 2 DIABETES MELLITUS
     Dosage: 60 U, QD, SUBCUTANEOUS
     Route: 058
     Dates: start: 20120317
  2. PANTOPRAZOLE (PANTOPRAZOLE) [Concomitant]
     Active Substance: PANTOPRAZOLE SODIUM
  3. LEVEMIR [Suspect]
     Active Substance: INSULIN DETEMIR
     Dosage: 60 U, QD, SUBCUTANEOUS
     Route: 058
     Dates: start: 20120317

REACTIONS (1)
  - Hypoglycaemic unconsciousness [None]

NARRATIVE: CASE EVENT DATE: 20140105
